FAERS Safety Report 9123680 (Version 2)
Quarter: 2013Q2

REPORT INFORMATION
  Report Type: Spontaneous
  Country: BR (occurrence: BR)
  Receive Date: 20130227
  Receipt Date: 20130402
  Transmission Date: 20140414
  Serious: Yes (Death, Hospitalization, Other)
  Sender: FDA-Public Use
  Company Number: PHHY2013BR018831

PATIENT
  Age: 70 Year
  Sex: Male

DRUGS (9)
  1. FORASEQ [Suspect]
     Indication: EMPHYSEMA
     Dosage: 1 CAPSULE OF EACH, THREE TIMES A DAY
  2. PREDNISONE [Concomitant]
     Indication: INFECTION PROPHYLAXIS
     Dosage: 0.5 DF, QD
     Route: 048
  3. FUROSEMIDE [Concomitant]
     Dosage: 2 DF, QD
     Route: 048
  4. SPIRONOLACTONE [Concomitant]
     Dosage: 1 DF, QD
     Route: 048
  5. PAROXETINE [Concomitant]
     Dosage: 05 DF, QD
     Route: 048
  6. DIGOXIN [Concomitant]
     Indication: CARDIAC DISORDER
     Dosage: 0.5 DF, QD
     Route: 048
  7. AAS [Concomitant]
     Dosage: 2 DF, QD
     Route: 048
  8. ENALAPRIL MALEATE [Concomitant]
     Indication: BLOOD PRESSURE
     Dosage: 0.5 DF, QD
     Route: 048
  9. OMEPRAZOLE [Concomitant]
     Indication: GASTRIC DISORDER
     Dosage: 2 DF, QD
     Route: 048

REACTIONS (14)
  - Respiratory failure [Fatal]
  - Cardiac failure [Fatal]
  - Emphysema [Fatal]
  - Fibrosis [Fatal]
  - Sensory loss [Recovered/Resolved]
  - Fall [Not Recovered/Not Resolved]
  - Arthralgia [Not Recovered/Not Resolved]
  - Pain in extremity [Not Recovered/Not Resolved]
  - Haematoma [Not Recovered/Not Resolved]
  - Pneumonia [Recovered/Resolved]
  - Lung neoplasm [Not Recovered/Not Resolved]
  - Cyanosis [Recovered/Resolved]
  - Dyspnoea [Recovered/Resolved]
  - Weight decreased [Not Recovered/Not Resolved]
